FAERS Safety Report 7078164-3 (Version None)
Quarter: 2010Q4

REPORT INFORMATION
  Report Type: 
  Country: None (occurrence: None)
  Receive Date: 20101101
  Receipt Date: 20101101
  Transmission Date: 20110411
  Serious: No
  Sender: FDA-Public Use
  Company Number: None

PATIENT
  Age: 68 Year
  Sex: Male
  Weight: 70.3075 kg

DRUGS (1)
  1. AVODART [Suspect]
     Indication: BENIGN PROSTATIC HYPERPLASIA
     Dosage: 0.5 MG 1 CAP. DAILY MOUTH
     Route: 048
     Dates: start: 20100315, end: 20100809

REACTIONS (2)
  - ARTHRALGIA [None]
  - MUSCULOSKELETAL PAIN [None]
